FAERS Safety Report 17685492 (Version 1)
Quarter: 2020Q2

REPORT INFORMATION
  Report Type: Spontaneous
  Country: US (occurrence: US)
  Receive Date: 20200420
  Receipt Date: 20200420
  Transmission Date: 20200714
  Serious: No
  Sender: FDA-Public Use
  Company Number: US-SA-2020SA102414

PATIENT
  Age: 66 Year
  Sex: Male
  Weight: 87.98 kg

DRUGS (5)
  1. VITAMINS NOS [Concomitant]
     Active Substance: VITAMINS
  2. ASPIRIN [ACETYLSALICYLIC ACID] [Concomitant]
     Active Substance: ASPIRIN
  3. IRON [Concomitant]
     Active Substance: IRON
  4. AUBAGIO [Suspect]
     Active Substance: TERIFLUNOMIDE
     Indication: MULTIPLE SCLEROSIS
     Dosage: 14 MG, QD
     Route: 048
     Dates: start: 20170427
  5. DONEPEZIL. [Concomitant]
     Active Substance: DONEPEZIL
     Dosage: 5 MG

REACTIONS (2)
  - Memory impairment [Unknown]
  - Depressed mood [Unknown]
